FAERS Safety Report 4646175-0 (Version None)
Quarter: 2005Q2

REPORT INFORMATION
  Report Type: 
  Country: None (occurrence: None)
  Receive Date: 20050422
  Receipt Date: 20050422
  Transmission Date: 20051028
  Serious: Yes (Death)
  Sender: FDA-Public Use
  Company Number: None

PATIENT
  Age: 42 Year
  Sex: Male
  Weight: 109.1 kg

DRUGS (4)
  1. CISPLATIN    UNK       UNK [Suspect]
     Indication: NEOPLASM RECURRENCE
     Dosage: INTRAVENOU
     Route: 042
     Dates: start: 20050214, end: 20050218
  2. CISPLATIN    UNK       UNK [Suspect]
     Indication: TESTIS CANCER
     Dosage: INTRAVENOU
     Route: 042
     Dates: start: 20050214, end: 20050218
  3. EPIRUBICIN [Suspect]
     Indication: NEOPLASM RECURRENCE
     Dosage: INTRAVENOU
     Route: 042
     Dates: start: 20050214, end: 20050218
  4. EPIRUBICIN [Suspect]
     Indication: TESTIS CANCER
     Dosage: INTRAVENOU
     Route: 042
     Dates: start: 20050214, end: 20050218

REACTIONS (7)
  - DEPRESSED LEVEL OF CONSCIOUSNESS [None]
  - DIALYSIS [None]
  - HEPATORENAL SYNDROME [None]
  - HYPOTENSION [None]
  - PYREXIA [None]
  - RENAL FAILURE [None]
  - WHITE BLOOD CELL COUNT INCREASED [None]
